FAERS Safety Report 6299658-4 (Version None)
Quarter: 2009Q3

REPORT INFORMATION
  Report Type: 
  Country: None (occurrence: None)
  Receive Date: 20090806
  Receipt Date: 20090730
  Transmission Date: 20100115
  Serious: Yes (Other)
  Sender: FDA-Public Use
  Company Number: CH-AVENTIS-200917975GDDC

PATIENT
  Age: 61 Year
  Sex: Female
  Weight: 89 kg

DRUGS (1)
  1. LANTUS [Suspect]
     Route: 058
     Dates: start: 20060120, end: 20090720

REACTIONS (1)
  - MYELOPROLIFERATIVE DISORDER [None]
